FAERS Safety Report 14639254 (Version 2)
Quarter: 2018Q1

REPORT INFORMATION
  Report Type: Spontaneous
  Country: PT (occurrence: PT)
  Receive Date: 20180315
  Receipt Date: 20180322
  Transmission Date: 20180509
  Serious: Yes (Other)
  Sender: FDA-Public Use
  Company Number: PT-ROCHE-2084483

PATIENT
  Age: 50 Year
  Sex: Female

DRUGS (14)
  1. DOCETAXEL. [Suspect]
     Active Substance: DOCETAXEL
     Indication: BREAST CANCER METASTATIC
     Dosage: DOCETAXEL DOSE REDUCTION TO 75 MG/M2
     Route: 058
     Dates: start: 20160410, end: 20170406
  2. DOCETAXEL. [Suspect]
     Active Substance: DOCETAXEL
     Route: 065
     Dates: start: 201607, end: 20170406
  3. FUROSEMIDE. [Concomitant]
     Active Substance: FUROSEMIDE
  4. CARVEDILOL. [Concomitant]
     Active Substance: CARVEDILOL
  5. KADCYLA [Suspect]
     Active Substance: ADO-TRASTUZUMAB EMTANSINE
     Route: 042
     Dates: start: 201710, end: 20180105
  6. HERCEPTIN [Suspect]
     Active Substance: TRASTUZUMAB
     Indication: BREAST CANCER METASTATIC
     Route: 058
     Dates: start: 20160410, end: 20170406
  7. ZOLEDRONIC ACID [Suspect]
     Active Substance: ZOLEDRONIC ACID
     Indication: BREAST CANCER METASTATIC
     Route: 042
     Dates: start: 20160310
  8. HERCEPTIN [Suspect]
     Active Substance: TRASTUZUMAB
     Indication: BREAST CANCER METASTATIC
     Route: 042
     Dates: start: 20160310
  9. RAMIPRIL. [Concomitant]
     Active Substance: RAMIPRIL
  10. KADCYLA [Suspect]
     Active Substance: ADO-TRASTUZUMAB EMTANSINE
     Indication: BREAST CANCER METASTATIC
     Route: 042
     Dates: start: 20170428, end: 201710
  11. PERJETA [Suspect]
     Active Substance: PERTUZUMAB
     Indication: BREAST CANCER METASTATIC
     Route: 042
     Dates: start: 20160310
  12. PERJETA [Suspect]
     Active Substance: PERTUZUMAB
     Route: 058
     Dates: start: 20160410, end: 20170406
  13. OMEPRAZOLE. [Concomitant]
     Active Substance: OMEPRAZOLE
  14. PARACETAMOL [Concomitant]
     Active Substance: ACETAMINOPHEN

REACTIONS (17)
  - Palmar-plantar erythrodysaesthesia syndrome [Unknown]
  - Product use issue [Unknown]
  - Decreased appetite [Unknown]
  - Alopecia [Unknown]
  - Ejection fraction decreased [Unknown]
  - Onycholysis [Unknown]
  - Neuropathy peripheral [Unknown]
  - Rhinorrhoea [Unknown]
  - Pleural effusion [Unknown]
  - Arthralgia [Unknown]
  - Neutropenia [Unknown]
  - Off label use [Unknown]
  - Thrombocytopenia [Recovered/Resolved]
  - Conjunctivitis [Unknown]
  - Oedema peripheral [Unknown]
  - Bone pain [Unknown]
  - Thrombocytopenia [Recovered/Resolved]

NARRATIVE: CASE EVENT DATE: 201607
